FAERS Safety Report 4323320-8 (Version None)
Quarter: 2004Q1

REPORT INFORMATION
  Report Type: 
  Country: None (occurrence: None)
  Receive Date: 20040322
  Receipt Date: 20040304
  Transmission Date: 20041129
  Serious: Yes (Hospitalization)
  Sender: FDA-Public Use
  Company Number: S04-GER-01080-01

PATIENT
  Age: 36 Year
  Sex: Male

DRUGS (19)
  1. CIPRAMIL (CITALOPRAM HYDROBROMIDE) [Suspect]
     Dosage: 20 MG QD PO
     Route: 048
     Dates: start: 20030708, end: 20030708
  2. CIPRAMIL (CITALOPRAM HYDROBROMIDE) [Suspect]
     Dosage: 40 MG QD PO
     Route: 048
     Dates: start: 20020722, end: 20030707
  3. CIPRAMIL (CITALOPRAM HYDROBROMIDE) [Suspect]
     Dosage: 20 MG QD PO
     Route: 048
     Dates: start: 20020719, end: 20020721
  4. CIPRAMIL (CITALOPRAM HYDROBROMIDE) [Suspect]
     Dosage: 10 MG QD PO
     Route: 048
     Dates: start: 20020716, end: 20020718
  5. SOLIAN (AMISULPRIDE) [Suspect]
     Dosage: 200 MB QD
     Dates: start: 20030708, end: 20030708
  6. SOLIAN (AMISULPRIDE) [Suspect]
     Dosage: 600 MG QD PO
     Route: 048
     Dates: start: 20030616, end: 20030707
  7. SOLIAN (AMISULPRIDE) [Suspect]
     Dosage: 500 MG QD PO
     Route: 048
     Dates: start: 20021216, end: 20030616
  8. SOLIAN (AMISULPRIDE) [Suspect]
     Dosage: 700 MG QD PO
     Route: 048
     Dates: start: 20021214, end: 20021215
  9. SOLIAN(AMISULPRIDE) [Suspect]
     Dosage: 600 MG QD PO
     Route: 048
     Dates: start: 20021212, end: 20021213
  10. SOLIAN (AMISULPRIDE) [Suspect]
     Dosage: 500 MG QD PO
     Route: 048
     Dates: start: 20020831, end: 20021211
  11. SOLIAN (AMISULPRIDE) [Suspect]
     Dosage: 400 MG QD PO
     Route: 048
     Dates: start: 20020731, end: 20020830
  12. SOLIAN (AMISULPRIDE) [Suspect]
     Dosage: 300 MG QD PO
     Route: 048
     Dates: start: 20020727, end: 20020730
  13. SOLIAN (AMISULPRIDE) [Suspect]
     Dosage: 250 MG QD PO
     Route: 048
     Dates: start: 20020724, end: 20020726
  14. SOLIAN (AMISULPRIDE) [Suspect]
     Dosage: 150 MG QD PO
     Route: 048
     Dates: start: 20020722, end: 20020723
  15. UBRETID (DISTIGMINE BROMIDE) [Suspect]
     Dosage: 2 UNK QD PO
     Route: 048
     Dates: start: 20021218
  16. UBRETID(DISTIGMINE BROMIDE) [Suspect]
     Dosage: 1 UNK QD PO
     Route: 048
     Dates: start: 20020717, end: 20021217
  17. VALPROATE SODIUM [Concomitant]
  18. PANTOZOL (PANTOPRAZOLE SODIUM) [Concomitant]
  19. MEGNESIUM (MAGNESIUM) [Concomitant]

REACTIONS (4)
  - BLOOD PRESSURE DECREASED [None]
  - BRADYCARDIA [None]
  - CIRCULATORY COLLAPSE [None]
  - SYNCOPE [None]
